FAERS Safety Report 12140570 (Version 1)
Quarter: 2016Q1

REPORT INFORMATION
  Report Type: Spontaneous
  Country: US (occurrence: None)
  Receive Date: 20160302
  Receipt Date: 20160302
  Transmission Date: 20160526
  Serious: Yes (Death)
  Sender: FDA-Public Use
  Company Number: None

PATIENT
  Age: 41 Year
  Sex: Female
  Weight: 63.5 kg

DRUGS (2)
  1. TOPIRAMATE 25MG ASCENT [Suspect]
     Active Substance: TOPIRAMATE
     Dosage: ONE ONCE DAILY TAKEN BY MOUTH
     Route: 048
     Dates: end: 20160205
  2. PHENTERMINE 37.5 MG ELITE [Suspect]
     Active Substance: PHENTERMINE
     Dosage: ONE ONCE DAILY TAKEN BY MOUTH
     Route: 048
     Dates: end: 20160205

REACTIONS (1)
  - Completed suicide [None]
